FAERS Safety Report 23079345 (Version 1)
Quarter: 2023Q4

REPORT INFORMATION
  Report Type: Report from Study
  Country: BR (occurrence: BR)
  Receive Date: 20231018
  Receipt Date: 20231018
  Transmission Date: 20240109
  Serious: Yes (Other)
  Sender: FDA-Public Use
  Company Number: BR-002147023-NVSC2023BR187928

PATIENT
  Age: 46 Year
  Sex: Female
  Weight: 85 kg

DRUGS (4)
  1. COSENTYX [Suspect]
     Active Substance: SECUKINUMAB
     Indication: Psoriasis
     Dosage: 2 DOSAGE FORM (ON WEEKS 0,1,2,3  AND 4) (NOT INITIATED) (SYRINGE)
     Route: 058
  2. COSENTYX [Suspect]
     Active Substance: SECUKINUMAB
     Dosage: 300 MG, EVERY 4 WEEKS (NOT INITIATED)
     Route: 058
  3. ADALIMUMAB [Suspect]
     Active Substance: ADALIMUMAB\ISOPROPYL ALCOHOL
     Indication: Psoriasis
     Dosage: UNK (STOPPED MORE THAN ONE YEAR AGO)
     Route: 065
  4. ADALIMUMAB [Suspect]
     Active Substance: ADALIMUMAB\ISOPROPYL ALCOHOL
     Dosage: 300 MG (150 MG SYRINGE)
     Route: 065

REACTIONS (6)
  - Blindness [Unknown]
  - Vision blurred [Unknown]
  - Self esteem decreased [Unknown]
  - Psoriasis [Unknown]
  - Therapeutic product effect decreased [Unknown]
  - Product prescribing error [Unknown]

NARRATIVE: CASE EVENT DATE: 20230717
